FAERS Safety Report 11915969 (Version 1)
Quarter: 2016Q1

REPORT INFORMATION
  Report Type: Spontaneous
  Country: US (occurrence: None)
  Receive Date: 20160113
  Receipt Date: 20160113
  Transmission Date: 20160526
  Serious: No
  Sender: FDA-Public Use
  Company Number: None

PATIENT
  Age: 33 Year

DRUGS (1)
  1. LIOTHYRONINE [Suspect]
     Active Substance: LIOTHYRONINE
     Indication: THYROID DISORDER
     Route: 048
     Dates: start: 20151214, end: 201601

REACTIONS (12)
  - Sluggishness [None]
  - Eye swelling [None]
  - Fluid retention [None]
  - Temperature regulation disorder [None]
  - Fatigue [None]
  - Peripheral coldness [None]
  - Depression [None]
  - Attention deficit/hyperactivity disorder [None]
  - Hair texture abnormal [None]
  - Insomnia [None]
  - Dry skin [None]
  - Weight increased [None]
